FAERS Safety Report 24078119 (Version 2)
Quarter: 2024Q3

REPORT INFORMATION
  Report Type: Spontaneous
  Country: JP (occurrence: JP)
  Receive Date: 20240711
  Receipt Date: 20240808
  Transmission Date: 20241017
  Serious: Yes (Other)
  Sender: JOHNSON AND JOHNSON
  Company Number: JP-JNJFOC-20240727339

PATIENT
  Age: 86 Year
  Sex: Male

DRUGS (3)
  1. TREMFYA [Suspect]
     Active Substance: GUSELKUMAB
     Indication: Psoriasis
     Dosage: DOSE UNKNOWN
     Route: 058
     Dates: start: 20180925
  2. TREMFYA [Suspect]
     Active Substance: GUSELKUMAB
     Dosage: DOSE UNKNOWN
     Route: 058
  3. TREMFYA [Suspect]
     Active Substance: GUSELKUMAB

REACTIONS (1)
  - Atypical mycobacterial infection [Unknown]
